FAERS Safety Report 7468492-1 (Version None)
Quarter: 2011Q2

REPORT INFORMATION
  Report Type: 
  Country: None (occurrence: None)
  Receive Date: 20110509
  Receipt Date: 20110502
  Transmission Date: 20111010
  Serious: Yes (Other)
  Sender: FDA-Public Use
  Company Number: US-MERCK-0901USA03025

PATIENT
  Age: 58 Year
  Sex: Female
  Weight: 66 kg

DRUGS (1)
  1. FOSAMAX [Suspect]
     Indication: OSTEOPOROSIS
     Route: 048
     Dates: start: 19970801, end: 20060401

REACTIONS (26)
  - OSTEONECROSIS OF JAW [None]
  - ADVERSE EVENT [None]
  - PAIN [None]
  - CEREBROVASCULAR DISORDER [None]
  - FALL [None]
  - ATROPHIC VULVOVAGINITIS [None]
  - SECONDARY HYPERTENSION [None]
  - OSTEOPENIA [None]
  - HYPERTENSION [None]
  - APPENDIX DISORDER [None]
  - BONE DENSITY DECREASED [None]
  - INTERVERTEBRAL DISC DEGENERATION [None]
  - MOUTH ULCERATION [None]
  - STOMATITIS [None]
  - COSTOCHONDRITIS [None]
  - HYPERLIPIDAEMIA [None]
  - TOOTH FRACTURE [None]
  - GAIT DISTURBANCE [None]
  - MUSCULOSKELETAL CHEST PAIN [None]
  - MYALGIA [None]
  - GINGIVAL SWELLING [None]
  - ARTHRITIS [None]
  - TONSILLAR DISORDER [None]
  - DERMATITIS ALLERGIC [None]
  - COLONIC POLYP [None]
  - CARDIAC MURMUR [None]
